FAERS Safety Report 9276823 (Version 2)
Quarter: 2013Q2

REPORT INFORMATION
  Report Type: Spontaneous
  Country: US (occurrence: None)
  Receive Date: 20130501
  Receipt Date: 20130520
  Transmission Date: 20140414
  Serious: Yes (Other)
  Sender: FDA-Public Use
  Company Number: HA13-128-AE

PATIENT
  Age: 55 Year
  Sex: Female

DRUGS (2)
  1. SMZ / TMP [Suspect]
     Indication: URINARY TRACT INFECTION
     Route: 048
  2. COPAXONE [Concomitant]

REACTIONS (10)
  - Hypersensitivity [None]
  - Pain in jaw [None]
  - Hypoaesthesia [None]
  - Paraesthesia [None]
  - Blood pressure increased [None]
  - Pruritus [None]
  - Urticaria [None]
  - Swollen tongue [None]
  - Hypoaesthesia [None]
  - Ear pruritus [None]
